FAERS Safety Report 8041497-8 (Version None)
Quarter: 2012Q1

REPORT INFORMATION
  Report Type: 
  Country: None (occurrence: None)
  Receive Date: 20120112
  Receipt Date: 20120109
  Transmission Date: 20120608
  Serious: Yes (Other)
  Sender: FDA-Public Use
  Company Number: US-PFIZER INC-2012006635

PATIENT
  Sex: Female
  Weight: 54.422 kg

DRUGS (5)
  1. LEXAPRO [Concomitant]
     Dosage: UNK
  2. BISOPROLOL [Concomitant]
     Dosage: 6.25 MG, 1X/DAY
  3. ALPRAZOLAM [Concomitant]
     Dosage: 0.5 DF, 3X/DAY
  4. WELCHOL [Concomitant]
     Dosage: UNK, 1X/DAY
  5. XALATAN [Suspect]
     Dosage: UNK, 1X/DAY
     Route: 047

REACTIONS (1)
  - MACULAR DEGENERATION [None]
